FAERS Safety Report 13367405 (Version 1)
Quarter: 2017Q1

REPORT INFORMATION
  Report Type: Spontaneous
  Country: US (occurrence: US)
  Receive Date: 20170324
  Receipt Date: 20170324
  Transmission Date: 20170429
  Serious: No
  Sender: FDA-Public Use
  Company Number: US-TEVA-736746ACC

PATIENT
  Age: 56 Year
  Sex: Female

DRUGS (22)
  1. LETROZOLE. [Concomitant]
     Active Substance: LETROZOLE
  2. FLUOEXETINE [Concomitant]
  3. AMOX/K CLAV [Concomitant]
     Active Substance: AMOXICILLIN\CLAVULANATE POTASSIUM
  4. GABAPENTIN. [Concomitant]
     Active Substance: GABAPENTIN
  5. VITAMIN D [Concomitant]
     Active Substance: CHOLECALCIFEROL
  6. XANAX [Concomitant]
     Active Substance: ALPRAZOLAM
  7. AUGMENTIN [Concomitant]
     Active Substance: AMOXICILLIN\CLAVULANATE POTASSIUM
  8. NUVIGIL [Concomitant]
     Active Substance: ARMODAFINIL
  9. COPAXONE [Suspect]
     Active Substance: GLATIRAMER ACETATE
     Indication: MULTIPLE SCLEROSIS
     Dosage: 20 MILLIGRAM DAILY; PREFILLED SYRINGE
     Route: 058
     Dates: start: 200909
  10. PROZAC [Concomitant]
     Active Substance: FLUOXETINE HYDROCHLORIDE
  11. ARICEPT [Concomitant]
     Active Substance: DONEPEZIL HYDROCHLORIDE
  12. ZANTAC [Concomitant]
     Active Substance: RANITIDINE HYDROCHLORIDE
  13. AZITHROMYCIN ANHYDROUS. [Concomitant]
     Active Substance: AZITHROMYCIN ANHYDROUS
  14. PREDNISONE. [Concomitant]
     Active Substance: PREDNISONE
  15. CARAFATE [Concomitant]
     Active Substance: SUCRALFATE
  16. EXEMESTANE. [Concomitant]
     Active Substance: EXEMESTANE
  17. GLUCOSAMINE [Concomitant]
     Active Substance: GLUCOSAMINE
  18. CYMBALTA [Concomitant]
     Active Substance: DULOXETINE HYDROCHLORIDE
  19. NEXIUM [Concomitant]
     Active Substance: ESOMEPRAZOLE MAGNESIUM
  20. LORAZEPAM. [Concomitant]
     Active Substance: LORAZEPAM
  21. TOPERIMATE [Concomitant]
  22. PROMETRIUM [Concomitant]
     Active Substance: PROGESTERONE

REACTIONS (6)
  - Depression [Unknown]
  - Memory impairment [Unknown]
  - Fatigue [Unknown]
  - Drug dose omission [Unknown]
  - Cognitive disorder [Unknown]
  - Insomnia [Unknown]

NARRATIVE: CASE EVENT DATE: 201610
